FAERS Safety Report 10617366 (Version 1)
Quarter: 2014Q4

REPORT INFORMATION
  Report Type: Report from Study
  Country: KP (occurrence: KP)
  Receive Date: 20141201
  Receipt Date: 20141201
  Transmission Date: 20150529
  Serious: Yes (Other)
  Sender: FDA-Public Use
  Company Number: KP-GLAXOSMITHKLINE-KP2014GSK028968

PATIENT

DRUGS (3)
  1. MELPHALAN [Suspect]
     Active Substance: MELPHALAN
     Indication: AMYLOIDOSIS
     Dosage: 9 MG/M2, CYC
  2. BORTEZOMIB [Suspect]
     Active Substance: BORTEZOMIB
     Indication: AMYLOIDOSIS
     Dosage: 1.3 MG/M2, CYC
  3. PREDNISONE. [Suspect]
     Active Substance: PREDNISONE
     Indication: AMYLOIDOSIS
     Dosage: 60 MG/M2, CYC

REACTIONS (2)
  - Toxicity to various agents [Unknown]
  - Toxic skin eruption [Unknown]
